FAERS Safety Report 4493876-3 (Version None)
Quarter: 2004Q4

REPORT INFORMATION
  Report Type: 
  Country: None (occurrence: None)
  Receive Date: 20041102
  Receipt Date: 20040329
  Transmission Date: 20050328
  Serious: No
  Sender: FDA-Public Use
  Company Number: 2004UW03638

PATIENT
  Age: 23 Year
  Sex: Female

DRUGS (1)
  1. SEROQUEL [Suspect]
     Dosage: 25 MG BID PO
     Route: 048
     Dates: start: 20040205, end: 20040219

REACTIONS (1)
  - MENOMETRORRHAGIA [None]
